FAERS Safety Report 5674714-X (Version None)
Quarter: 2008Q1

REPORT INFORMATION
  Report Type: 
  Country: None (occurrence: None)
  Receive Date: 20080320
  Receipt Date: 20080317
  Transmission Date: 20080703
  Serious: Yes (Other)
  Sender: FDA-Public Use
  Company Number: B0513341A

PATIENT
  Age: 23 Year
  Sex: Female

DRUGS (7)
  1. LAMIVUDINE [Suspect]
     Indication: HIV INFECTION
     Dosage: 300MG PER DAY
     Route: 048
     Dates: start: 20070528, end: 20070604
  2. KALETRA [Suspect]
     Indication: HIV INFECTION
     Dosage: 1333MG PER DAY
     Route: 048
     Dates: start: 20060807, end: 20070528
  3. KALETRA [Suspect]
     Dosage: 1000MG PER DAY
     Route: 048
     Dates: start: 20070528, end: 20070604
  4. KALETRA [Suspect]
     Dosage: 1333MG PER DAY
     Route: 048
     Dates: start: 20070604
  5. EFAVIRENZ [Suspect]
     Indication: HIV INFECTION
     Dosage: 600MG PER DAY
     Route: 048
     Dates: start: 20060904, end: 20070528
  6. EFAVIRENZ [Suspect]
     Dosage: 600MG PER DAY
     Route: 048
     Dates: start: 20070604
  7. DIDANOSINE [Suspect]
     Indication: HIV INFECTION
     Dosage: 250MG PER DAY
     Route: 048
     Dates: start: 20060807

REACTIONS (1)
  - STILLBIRTH [None]
